FAERS Safety Report 12661546 (Version 4)
Quarter: 2018Q1

REPORT INFORMATION
  Report Type: Spontaneous
  Country: US (occurrence: US)
  Receive Date: 20160817
  Receipt Date: 20180322
  Transmission Date: 20180508
  Serious: Yes (Hospitalization)
  Sender: FDA-Public Use
  Company Number: US-PFIZER INC-2016364450

PATIENT
  Age: 74 Year
  Sex: Female
  Weight: 61 kg

DRUGS (11)
  1. AROMASIN [Suspect]
     Active Substance: EXEMESTANE
     Indication: BREAST CANCER FEMALE
     Dosage: 25 MG, 1X/DAY
     Route: 048
     Dates: start: 201511
  2. AROMASIN [Suspect]
     Active Substance: EXEMESTANE
     Dosage: 25 MG, 1X/DAY
     Route: 048
     Dates: start: 201511, end: 20180126
  3. VITAMIN D3 [Concomitant]
     Active Substance: CHOLECALCIFEROL
     Indication: MUSCLE DISORDER
  4. CALCIUM WITH VITAMIN D [Concomitant]
     Active Substance: CALCIUM\VITAMIN D
     Indication: BONE DISORDER
     Dosage: 1 DF, 2X/DAY (CALCIUM: 600 MG] (IT CONTAINS 600MG OF CALCIUM)
     Route: 048
  5. PRAVASTATIN. [Concomitant]
     Active Substance: PRAVASTATIN
     Indication: BLOOD CHOLESTEROL ABNORMAL
  6. LATANOPROST. [Concomitant]
     Active Substance: LATANOPROST
     Indication: PROPHYLAXIS
     Dosage: 2 GTT, DAILY (ONE DROP IN EACH EYE DAILY)
     Route: 047
  7. SUPER B COMPLEX [Concomitant]
     Active Substance: CYANOCOBALAMIN\DEXPANTHENOL\NIACINAMIDE\PYRIDOXINE HYDROCHLORIDE\RIBOFLAVIN 5^-PHOSPHATE SODIUM\THIAMINE HYDROCHLORIDE\VITAMIN B COMPLEX
     Indication: MULTIPLE SCLEROSIS
     Dosage: 1 DF, 1X/DAY (ONE TABLET ONCE A DAY BY MOUTH)
     Route: 048
  8. VITAMIN D3 [Concomitant]
     Active Substance: CHOLECALCIFEROL
     Indication: BONE DISORDER
     Dosage: 1000 MG, DAILY
     Route: 048
  9. VITAMIN D3 [Concomitant]
     Active Substance: CHOLECALCIFEROL
     Indication: TOOTH DISORDER
     Dosage: 1000 MG, ALTERNATE DAY (1000MG ONE TABLET EVERY OTHER DAY BY MOUTH)
     Route: 048
  10. AROMASIN [Suspect]
     Active Substance: EXEMESTANE
     Dosage: 25 MG, 1X/DAY
     Route: 048
     Dates: start: 2015
  11. PRAVASTATIN. [Concomitant]
     Active Substance: PRAVASTATIN
     Indication: MULTIPLE SCLEROSIS
     Dosage: 20 MG, 1X/DAY
     Route: 048

REACTIONS (4)
  - Drug dose omission [Unknown]
  - Pain in extremity [Recovered/Resolved]
  - Bone disorder [Not Recovered/Not Resolved]
  - Gait disturbance [Unknown]

NARRATIVE: CASE EVENT DATE: 201511
